FAERS Safety Report 4846788-7 (Version None)
Quarter: 2005Q4

REPORT INFORMATION
  Report Type: 
  Country: None (occurrence: None)
  Receive Date: 20051201
  Receipt Date: 20051111
  Transmission Date: 20060501
  Serious: No
  Sender: FDA-Public Use
  Company Number: US200511001092

PATIENT
  Age: 62 Year
  Sex: Male

DRUGS (3)
  1. CYMBALTA [Suspect]
     Indication: DIABETIC NEUROPATHY
     Dosage: 30 MG
  2. LIPITOR [Concomitant]
  3. AVANDIA /UNK/ (ROSIGLITAZONE MALEATE) [Concomitant]

REACTIONS (1)
  - HEPATIC ENZYME INCREASED [None]
